FAERS Safety Report 12215627 (Version 2)
Quarter: 2016Q2

REPORT INFORMATION
  Report Type: Spontaneous
  Country: BG (occurrence: BG)
  Receive Date: 20160328
  Receipt Date: 20160408
  Transmission Date: 20160815
  Serious: Yes (Other)
  Sender: FDA-Public Use
  Company Number: BG-KADMON PHARMACEUTICALS, LLC-KAD201603-001118

PATIENT
  Age: 76 Year
  Sex: Male

DRUGS (2)
  1. OMBITASVIR/PARITAPREVIR/RITONAVIR/DASABUVIR [Suspect]
     Active Substance: DASABUVIR\OMBITASVIR\PARITAPREVIR\RITONAVIR
     Indication: HEPATITIS C
     Dates: start: 20150108
  2. RIBAVIRIN. [Suspect]
     Active Substance: RIBAVIRIN
     Indication: HEPATITIS C
     Dates: start: 20150108

REACTIONS (1)
  - Hyperbilirubinaemia [Unknown]
